FAERS Safety Report 17297646 (Version 2)
Quarter: 2020Q1

REPORT INFORMATION
  Report Type: Spontaneous
  Country: FR (occurrence: FR)
  Receive Date: 20200122
  Receipt Date: 20200311
  Transmission Date: 20200409
  Serious: Yes (Hospitalization, Disabling)
  Sender: FDA-Public Use
  Company Number: FR-ACCORD-170317

PATIENT
  Age: 45 Year
  Sex: Male
  Weight: 55 kg

DRUGS (2)
  1. GEMCITABINE ACCORD [Suspect]
     Active Substance: GEMCITABINE HYDROCHLORIDE
     Indication: PANCREATIC CARCINOMA METASTATIC
     Dosage: SEE COMMENTS
     Route: 041
     Dates: start: 20191112, end: 20191223
  2. PACLITAXEL ACCORD [Suspect]
     Active Substance: PACLITAXEL
     Indication: PANCREATIC CARCINOMA METASTATIC
     Dosage: SEE COMMENTS
     Route: 041
     Dates: start: 20191112, end: 20191223

REACTIONS (6)
  - Myositis [Recovering/Resolving]
  - Rhabdomyolysis [Recovered/Resolved]
  - Erythema [Recovered/Resolved]
  - Hepatocellular injury [Recovered/Resolved]
  - Peripheral swelling [Recovered/Resolved]
  - Rash [Recovered/Resolved]

NARRATIVE: CASE EVENT DATE: 20191225
